FAERS Safety Report 14391026 (Version 2)
Quarter: 2018Q3

REPORT INFORMATION
  Report Type: Spontaneous
  Country: US (occurrence: US)
  Receive Date: 20180116
  Receipt Date: 20180813
  Transmission Date: 20181010
  Serious: No
  Sender: FDA-Public Use
  Company Number: US-PFIZER INC-2018015994

PATIENT
  Age: 58 Year
  Sex: Female
  Weight: 102.6 kg

DRUGS (10)
  1. ADVIL CONGESTION RELIEF [Suspect]
     Active Substance: IBUPROFEN\PHENYLEPHRINE HYDROCHLORIDE
     Indication: NASAL CONGESTION
     Dosage: 1 DF, UNK (ONE TABLET, ONCE AT AROUND NOON AND AGAIN AT AROUND 5 PM)
     Route: 048
     Dates: start: 20180110, end: 20180110
  2. ESCITALOPRAM [Suspect]
     Active Substance: ESCITALOPRAM OXALATE
     Indication: DEPRESSION
     Dosage: 10 MG, UNK
  3. VITAMIN B [Concomitant]
     Active Substance: VITAMIN B
     Dosage: UNK UNK, 1X/DAY
  4. LEVOTHYROXINE. [Concomitant]
     Active Substance: LEVOTHYROXINE
     Indication: AUTOIMMUNE THYROIDITIS
     Dosage: 0.112 UG, DAILY
     Dates: start: 2005
  5. ESCITALOPRAM [Suspect]
     Active Substance: ESCITALOPRAM OXALATE
     Indication: POST-TRAUMATIC STRESS DISORDER
     Dosage: 20 MG, DAILY(ONE A DAY AT NIGHT WHEN SHE GOES TO BED)
     Route: 048
     Dates: start: 2000
  6. METOPROLOL. [Concomitant]
     Active Substance: METOPROLOL
     Indication: HYPERTENSION
     Dosage: 25 UG, 3X/DAY
     Dates: start: 2015
  7. CENTRUM SILVER [Concomitant]
     Active Substance: MINERALS\VITAMINS
     Dosage: UNK UNK, 1X/DAY
  8. ADVIL CONGESTION RELIEF [Suspect]
     Active Substance: IBUPROFEN\PHENYLEPHRINE HYDROCHLORIDE
     Indication: SINUS PAIN
  9. FISH OIL [Concomitant]
     Active Substance: FISH OIL
     Dosage: UNK UNK, 1X/DAY
  10. ESCITALOPRAM [Suspect]
     Active Substance: ESCITALOPRAM OXALATE
     Indication: ANXIETY

REACTIONS (6)
  - Insomnia [Recovered/Resolved]
  - Hallucination [Recovered/Resolved]
  - Drug effect incomplete [Recovered/Resolved]
  - Mydriasis [Recovered/Resolved]
  - Contraindicated product administered [Recovered/Resolved]
  - Hallucination, auditory [Recovered/Resolved]

NARRATIVE: CASE EVENT DATE: 201801
